FAERS Safety Report 5958465-X (Version None)
Quarter: 2008Q4

REPORT INFORMATION
  Report Type: 
  Country: None (occurrence: None)
  Receive Date: 20081119
  Receipt Date: 20081110
  Transmission Date: 20090506
  Serious: Yes (Hospitalization)
  Sender: FDA-Public Use
  Company Number: US-ROCHE-596292

PATIENT
  Age: 47 Year
  Sex: Male

DRUGS (2)
  1. ALL-TRANS-RETINOIC ACID [Suspect]
     Route: 048
  2. ALL-TRANS-RETINOIC ACID [Suspect]
     Route: 048

REACTIONS (4)
  - DELIRIUM [None]
  - HEADACHE [None]
  - NEUTROPENIC COLITIS [None]
  - PYREXIA [None]
